FAERS Safety Report 14198328 (Version 1)
Quarter: 2017Q4

REPORT INFORMATION
  Report Type: Spontaneous
  Country: FR (occurrence: FR)
  Receive Date: 20171117
  Receipt Date: 20171117
  Transmission Date: 20180321
  Serious: Yes (Other)
  Sender: FDA-Public Use
  Company Number: FR-MERCK KGAA-2034464

PATIENT
  Age: 55 Year
  Sex: Female

DRUGS (4)
  1. NOVOTHYROX [Suspect]
     Active Substance: LEVOTHYROXINE SODIUM
     Indication: BASEDOW^S DISEASE
     Dates: start: 201704, end: 201708
  2. KESTIN [Concomitant]
     Active Substance: EBASTINE
  3. THYROZOL [Concomitant]
     Active Substance: METHIMAZOLE
  4. PROPRANOLOL [Concomitant]
     Active Substance: PROPRANOLOL HYDROCHLORIDE

REACTIONS (8)
  - Presyncope [Recovering/Resolving]
  - Monoplegia [Recovered/Resolved]
  - Alopecia [Recovering/Resolving]
  - Loss of consciousness [Recovering/Resolving]
  - Musculoskeletal stiffness [Recovering/Resolving]
  - Blood thyroid stimulating hormone abnormal [Recovering/Resolving]
  - Tetany [Recovering/Resolving]
  - Blood pressure increased [Recovering/Resolving]

NARRATIVE: CASE EVENT DATE: 2017
